FAERS Safety Report 16202592 (Version 1)
Quarter: 2019Q2

REPORT INFORMATION
  Report Type: Spontaneous
  Country: US (occurrence: US)
  Receive Date: 20190416
  Receipt Date: 20190416
  Transmission Date: 20190711
  Serious: No
  Sender: FDA-Public Use
  Company Number: US-ASTRAZENECA-2019SE53342

PATIENT

DRUGS (2)
  1. INDERAL [Suspect]
     Active Substance: PROPRANOLOL HYDROCHLORIDE
     Route: 065
  2. ZOMIG [Suspect]
     Active Substance: ZOLMITRIPTAN
     Route: 045
     Dates: start: 20160729

REACTIONS (7)
  - Diarrhoea [Unknown]
  - Vomiting [Unknown]
  - Syncope [Unknown]
  - Lethargy [Unknown]
  - Abdominal pain [Unknown]
  - Chest pain [Unknown]
  - Hypersensitivity [Unknown]
